FAERS Safety Report 6838281-7 (Version None)
Quarter: 2010Q3

REPORT INFORMATION
  Report Type: 
  Country: None (occurrence: None)
  Receive Date: 20100709
  Receipt Date: 20100623
  Transmission Date: 20110219
  Serious: Yes (Death)
  Sender: FDA-Public Use
  Company Number: 2010-1290

PATIENT
  Age: 61 Year
  Sex: Male

DRUGS (6)
  1. APO-GO AMPOULES(APO-GO)(APOMORPHINE HYDROCHLORIDE)(APOMORPHINE HYDROCH [Suspect]
     Indication: PARKINSON'S DISEASE
     Dosage: ,SUBCUTANEOUS
     Route: 058
     Dates: start: 20090122
  2. PRAMIPEXOLE DIHYDROCHLORIDE [Concomitant]
  3. MOTILIUM [Concomitant]
  4. STALEVO 100 (STALEVO) [Concomitant]
  5. STALEVO 200 (STALEVO) [Concomitant]
  6. AZILECT [Concomitant]

REACTIONS (1)
  - COMPLETED SUICIDE [None]
